FAERS Safety Report 7746413-1 (Version None)
Quarter: 2011Q3

REPORT INFORMATION
  Report Type: 
  Country: None (occurrence: None)
  Receive Date: 20110913
  Receipt Date: 20110913
  Transmission Date: 20111222
  Serious: Yes (Life-Threatening, Hospitalization, Other)
  Sender: FDA-Public Use
  Company Number: None

PATIENT
  Age: 42 Year
  Sex: Male
  Weight: 108.86 kg

DRUGS (1)
  1. PROVIGIL [Suspect]
     Indication: NARCOLEPSY
     Dosage: 200MG
     Route: 048
     Dates: start: 20050601, end: 20110701

REACTIONS (14)
  - ALLODYNIA [None]
  - THINKING ABNORMAL [None]
  - CHEST PAIN [None]
  - HEADACHE [None]
  - INSOMNIA [None]
  - PYREXIA [None]
  - NEURALGIA [None]
  - CONFUSIONAL STATE [None]
  - LYMPHADENOPATHY [None]
  - AGITATION [None]
  - OROPHARYNGEAL PAIN [None]
  - PAIN [None]
  - CYSTITIS [None]
  - DEPRESSION [None]
